FAERS Safety Report 25854576 (Version 1)
Quarter: 2025Q3

REPORT INFORMATION
  Report Type: Spontaneous
  Country: US (occurrence: US)
  Receive Date: 20250927
  Receipt Date: 20250927
  Transmission Date: 20251021
  Serious: No
  Sender: SANOFI AVENTIS
  Company Number: US-SA-2025SA285803

PATIENT
  Age: 42 Year
  Sex: Male
  Weight: 84.09 kg

DRUGS (10)
  1. NEXVIAZYME [Suspect]
     Active Substance: AVALGLUCOSIDASE ALFA-NGPT
     Indication: Glycogen storage disease type II
     Dosage: 4000 MG, QOW
     Route: 042
     Dates: end: 2025
  2. EPINEPHRINE [Concomitant]
     Active Substance: EPINEPHRINE
  3. STERILE WATER [Concomitant]
     Active Substance: WATER
  4. SODIUM CHLORIDE [Concomitant]
     Active Substance: SODIUM CHLORIDE
  5. TRAMADOL HCL [Concomitant]
     Active Substance: TRAMADOL HYDROCHLORIDE
  6. CYCLOBENZAPRINE HYDROCHLORIDE [Concomitant]
     Active Substance: CYCLOBENZAPRINE HYDROCHLORIDE
  7. DEXTROSE [Concomitant]
     Active Substance: DEXTROSE MONOHYDRATE
  8. NALOXONE HCL [Concomitant]
     Active Substance: NALOXONE HYDROCHLORIDE
  9. HEPARIN [Concomitant]
     Active Substance: HEPARIN SODIUM
  10. ACETAMINOPHEN\HYDROCODONE [Concomitant]
     Active Substance: ACETAMINOPHEN\HYDROCODONE

REACTIONS (2)
  - Influenza [Unknown]
  - Oropharyngeal pain [Unknown]

NARRATIVE: CASE EVENT DATE: 20250101
